FAERS Safety Report 5706799-6 (Version None)
Quarter: 2008Q2

REPORT INFORMATION
  Report Type: 
  Country: None (occurrence: None)
  Receive Date: 20080415
  Receipt Date: 20080415
  Transmission Date: 20081010
  Serious: Yes (Other)
  Sender: FDA-Public Use
  Company Number: None

PATIENT
  Sex: Male
  Weight: 21.7727 kg

DRUGS (1)
  1. MIRALAX [Suspect]
     Indication: CONSTIPATION
     Dosage: 17 GRAMS THEN 8.5 GRAMS DAILY PO
     Route: 048
     Dates: start: 20071215, end: 20080407

REACTIONS (10)
  - ABDOMINAL PAIN UPPER [None]
  - CONDITION AGGRAVATED [None]
  - DIARRHOEA [None]
  - EYE ROLLING [None]
  - HEADACHE [None]
  - NAUSEA [None]
  - NERVOUS SYSTEM DISORDER [None]
  - OBSESSIVE-COMPULSIVE DISORDER [None]
  - PAIN IN EXTREMITY [None]
  - RETCHING [None]
